FAERS Safety Report 8824434 (Version 2)
Quarter: 2012Q4

REPORT INFORMATION
  Report Type: 
  Country: US (occurrence: US)
  Receive Date: 20121004
  Receipt Date: 20121016
  Transmission Date: 20130627
  Serious: Yes (Hospitalization)
  Sender: FDA-Public Use
  Company Number: US-BAYER-2012-101496

PATIENT
  Age: 30 Year
  Sex: Female

DRUGS (9)
  1. OCELLA [Suspect]
     Indication: ACNE
     Dosage: UNK
     Dates: start: 20101026, end: 20111016
  2. DUAC CS (CLINDAMYCIN - BENZOYL PRX SKIN) [Concomitant]
     Dosage: 1-5 %
     Route: 061
     Dates: start: 20111012
  3. TAZORAC [Concomitant]
     Dosage: 0.1 %, UNK
     Route: 061
     Dates: start: 20111012
  4. ZYRTEC [Concomitant]
     Dosage: 10 mg, UNK
     Route: 048
     Dates: start: 20111012
  5. BENZOYL PEROXIDE [Concomitant]
     Dosage: UNK
     Route: 061
     Dates: start: 20111012
  6. VOLTAREN [Concomitant]
     Indication: PAIN
     Dosage: One Q12Hr
     Route: 048
     Dates: start: 20111012
  7. CHLORZOXAZONE [Concomitant]
     Indication: MUSCLE RELAXANT THERAPY
     Dosage: 500 mg, UNK
     Route: 048
     Dates: start: 20111012
  8. ULTRAM [Concomitant]
     Indication: PAIN
     Dosage: 50 mg (1-2) Q 4-6 hrs
     Route: 048
     Dates: start: 20111017
  9. ASPIRIN [Concomitant]
     Dosage: 325 mg, BID
     Route: 048
     Dates: start: 20111017

REACTIONS (2)
  - Pulmonary embolism [None]
  - Deep vein thrombosis [None]
